FAERS Safety Report 23850814 (Version 1)
Quarter: 2024Q2

REPORT INFORMATION
  Report Type: Spontaneous
  Country: CN (occurrence: None)
  Receive Date: 20240514
  Receipt Date: 20240514
  Transmission Date: 20240716
  Serious: Yes (Hospitalization)
  Sender: FDA-Public Use
  Company Number: CN-ALVOTECHPMS-2024-ALVOTECHPMS-001819

PATIENT
  Age: 34 Year
  Sex: Female

DRUGS (2)
  1. ADALIMUMAB [Suspect]
     Active Substance: ADALIMUMAB\ISOPROPYL ALCOHOL
     Indication: Psoriasis
     Dosage: ONCE EVERY 2 WEEKS FOR 1 MONTH
     Route: 058
  2. ADALIMUMAB [Suspect]
     Active Substance: ADALIMUMAB\ISOPROPYL ALCOHOL
     Indication: Drug eruption
     Dosage: ONCE EVERY 2 WEEKS FOR 1 MONTH
     Route: 058

REACTIONS (1)
  - Paradoxical psoriasis [Recovering/Resolving]
